FAERS Safety Report 6328446-5 (Version None)
Quarter: 2009Q3

REPORT INFORMATION
  Report Type: 
  Country: None (occurrence: None)
  Receive Date: 20090825
  Receipt Date: 20090722
  Transmission Date: 20100115
  Serious: No
  Sender: FDA-Public Use
  Company Number: US-ABBOTT-09P-163-0586915-00

PATIENT

DRUGS (8)
  1. SYNTHROID [Suspect]
     Indication: HYPOTHYROIDISM
     Route: 048
     Dates: start: 20090605, end: 20090627
  2. TENORMIN [Concomitant]
     Indication: HYPERTENSION
     Route: 048
  3. TENORMIN [Concomitant]
     Indication: HEART RATE INCREASED
  4. DYAZIDE [Concomitant]
     Indication: HYPERTENSION
     Dosage: 37.5/25 MAY TAKE 1 ADDL AS NEEDED
     Route: 048
  5. NORVASC [Concomitant]
     Indication: HYPERTENSION
     Route: 048
  6. PREMARIN [Concomitant]
     Indication: HORMONE REPLACEMENT THERAPY
     Route: 048
  7. POTASSIUM CHLORIDE [Concomitant]
     Indication: ELECTROLYTE SUBSTITUTION THERAPY
     Route: 048
     Dates: start: 20090701
  8. POTASSIUM CHLORIDE [Concomitant]
     Route: 048

REACTIONS (4)
  - BLOOD POTASSIUM DECREASED [None]
  - OEDEMA PERIPHERAL [None]
  - PHARYNGEAL OEDEMA [None]
  - SENSORY DISTURBANCE [None]
